FAERS Safety Report 6500075-X (Version None)
Quarter: 2009Q4

REPORT INFORMATION
  Report Type: 
  Country: None (occurrence: None)
  Receive Date: 20091214
  Receipt Date: 20091214
  Transmission Date: 20100525
  Serious: Yes (Hospitalization)
  Sender: FDA-Public Use
  Company Number: None

PATIENT
  Age: 49 Year
  Sex: Male
  Weight: 74.5 kg

DRUGS (7)
  1. EVEROLIMUS 5 MG/NOVARTIS [Suspect]
     Indication: PANCREATIC CARCINOMA METASTATIC
     Dosage: 5 MG PO QD
     Route: 048
     Dates: start: 20091111
  2. SORAFENIB 200 MG/BAYER/ONYX [Suspect]
     Indication: PANCREATIC CARCINOMA METASTATIC
     Dosage: 400 MG PO BID
     Route: 048
     Dates: start: 20091202
  3. CREON [Concomitant]
  4. OXYCODONE [Concomitant]
  5. PEPCID [Concomitant]
  6. COMPAZINE [Concomitant]
  7. REGLAN [Concomitant]

REACTIONS (4)
  - BLOOD PRESSURE DECREASED [None]
  - HEART RATE INCREASED [None]
  - INFECTION [None]
  - LIVER ABSCESS [None]
